FAERS Safety Report 5541865-X (Version None)
Quarter: 2007Q4

REPORT INFORMATION
  Report Type: 
  Country: None (occurrence: None)
  Receive Date: 20071210
  Receipt Date: 20071127
  Transmission Date: 20080405
  Serious: Yes (Other)
  Sender: FDA-Public Use
  Company Number: TW-ROCHE-535565

PATIENT

DRUGS (6)
  1. MYCOPHENOLATE MOFETIL [Suspect]
     Route: 065
  2. RAPAMUNE [Suspect]
     Route: 065
  3. SANDIMMUNE [Concomitant]
  4. PROGRAF [Concomitant]
  5. PROGRAF [Concomitant]
  6. STEROID NOS [Concomitant]

REACTIONS (1)
  - IGA NEPHROPATHY [None]
